FAERS Safety Report 8459508-4 (Version None)
Quarter: 2012Q2

REPORT INFORMATION
  Report Type: 
  Country: None (occurrence: None)
  Receive Date: 20120622
  Receipt Date: 20120614
  Transmission Date: 20120825
  Serious: Yes (Other)
  Sender: FDA-Public Use
  Company Number: US-US-EMD SERONO, INC.-7140977

PATIENT
  Sex: Female
  Weight: 76 kg

DRUGS (2)
  1. REBIF [Suspect]
     Indication: PRODUCT USED FOR UNKNOWN INDICATION
     Route: 058
     Dates: start: 20090428
  2. IBUPROFEN [Concomitant]
     Indication: PRODUCT USED FOR UNKNOWN INDICATION

REACTIONS (9)
  - BLOOD GLUCOSE INCREASED [None]
  - PNEUMONIA [None]
  - ABDOMINAL DISCOMFORT [None]
  - HYSTERECTOMY [None]
  - PEPTIC ULCER [None]
  - HERNIA [None]
  - PAIN [None]
  - SINUSITIS [None]
  - PYREXIA [None]
